FAERS Safety Report 6183649-8 (Version None)
Quarter: 2009Q2

REPORT INFORMATION
  Report Type: 
  Country: None (occurrence: None)
  Receive Date: 20090508
  Receipt Date: 20090428
  Transmission Date: 20091009
  Serious: Yes (Other)
  Sender: FDA-Public Use
  Company Number: ES-JNJFOC-20090404725

PATIENT
  Sex: Male
  Weight: 82 kg

DRUGS (2)
  1. INVEGA [Suspect]
     Indication: PSYCHOTIC DISORDER
     Route: 048
  2. DUMIROX [Concomitant]
     Indication: DEPRESSION
     Route: 048

REACTIONS (2)
  - MYOPIA [None]
  - WEIGHT INCREASED [None]
